FAERS Safety Report 9667624 (Version 1)
Quarter: 2013Q4

REPORT INFORMATION
  Report Type: Spontaneous
  Country: TW (occurrence: TW)
  Receive Date: 20131104
  Receipt Date: 20131104
  Transmission Date: 20140711
  Serious: Yes (Hospitalization)
  Sender: FDA-Public Use
  Company Number: TW-PFIZER INC-2013310761

PATIENT
  Age: 63 Year
  Sex: Male

DRUGS (1)
  1. SUTENT [Suspect]
     Indication: RENAL CELL CARCINOMA
     Dosage: 50 MG DAILY, TWO WEEKS ON AND ONE WEEK OFF
     Route: 048
     Dates: start: 20130913

REACTIONS (3)
  - Toothache [Unknown]
  - Local swelling [Unknown]
  - Gingival bleeding [Unknown]
